FAERS Safety Report 7595901-X (Version None)
Quarter: 2011Q3

REPORT INFORMATION
  Report Type: 
  Country: None (occurrence: None)
  Receive Date: 20110707
  Receipt Date: 20110630
  Transmission Date: 20111222
  Serious: Yes (Hospitalization)
  Sender: FDA-Public Use
  Company Number: DE-JNJFOC-20110612807

PATIENT
  Age: 59 Year
  Sex: Female
  Weight: 69 kg

DRUGS (4)
  1. USTEKINUMAB [Suspect]
     Dates: start: 20101025, end: 20101025
  2. METHOTREXATE [Suspect]
     Indication: PSORIASIS
  3. USTEKINUMAB [Suspect]
     Indication: PSORIASIS
     Dates: start: 20110413, end: 20110413
  4. USTEKINUMAB [Suspect]
     Dates: start: 20110119, end: 20110119

REACTIONS (1)
  - BREAST CANCER IN SITU [None]
